FAERS Safety Report 17519865 (Version 1)
Quarter: 2020Q1

REPORT INFORMATION
  Report Type: Spontaneous
  Country: US (occurrence: US)
  Receive Date: 20200309
  Receipt Date: 20200309
  Transmission Date: 20200409
  Serious: Yes (Hospitalization)
  Sender: FDA-Public Use
  Company Number: None

PATIENT
  Age: 80 Year
  Sex: Male
  Weight: 68 kg

DRUGS (7)
  1. ATORVASTATIN 40 MG TAB [Concomitant]
  2. HYDROXYZINE 10 MG TAB [Concomitant]
  3. AMLODIPINE- BENAZEPRIL 10-40 MG TAB [Concomitant]
  4. COMBIGAN [Concomitant]
     Active Substance: BRIMONIDINE TARTRATE\TIMOLOL MALEATE
  5. CYCLOPHOSPHAMIDE 50 MG CAPSULES [Suspect]
     Active Substance: CYCLOPHOSPHAMIDE
     Indication: PLASMA CELL MYELOMA
     Dosage: ?          OTHER FREQUENCY:ONCE WEEKLY;?
     Route: 048
     Dates: start: 20200212
  6. ASPIRIN 81 MG TAB [Concomitant]
  7. ONDANSETRON ODT 4 MG TAB [Concomitant]

REACTIONS (1)
  - Hospitalisation [None]
